FAERS Safety Report 5874845-5 (Version None)
Quarter: 2008Q3

REPORT INFORMATION
  Report Type: 
  Country: None (occurrence: None)
  Receive Date: 20080908
  Receipt Date: 20080908
  Transmission Date: 20090109
  Serious: Yes (Other)
  Sender: FDA-Public Use
  Company Number: None

PATIENT
  Age: 58 Year
  Sex: Male
  Weight: 106.5953 kg

DRUGS (2)
  1. CEFUROXIME [Suspect]
     Indication: PNEUMONIA
     Dosage: 500MG PO BID
     Route: 048
     Dates: start: 20080901, end: 20080904
  2. CLINDAMYCIN HCL [Concomitant]

REACTIONS (3)
  - BLISTER [None]
  - ERYTHEMA [None]
  - SWELLING [None]
